FAERS Safety Report 7156067-3 (Version None)
Quarter: 2010Q4

REPORT INFORMATION
  Report Type: 
  Country: None (occurrence: None)
  Receive Date: 20101123
  Receipt Date: 20100817
  Transmission Date: 20110411
  Serious: Yes (Death, Hospitalization)
  Sender: FDA-Public Use
  Company Number: 8042309

PATIENT
  Sex: Female

DRUGS (17)
  1. CERTOLIZUMAB PEGOL [Suspect]
     Indication: CROHN'S DISEASE
     Dosage: (SUBCUTANEOUS)
     Route: 058
  2. METHOTREXATE [Concomitant]
  3. ASCORBIC ACID [Concomitant]
  4. IRON [Concomitant]
  5. FOLIC ACID [Concomitant]
  6. LASIX [Concomitant]
  7. LISINOPRIL [Concomitant]
  8. MESALAMINE [Concomitant]
  9. METOPROLOL [Concomitant]
  10. PROTONIX [Concomitant]
  11. METAMUCIL /00029101/ [Concomitant]
  12. DEPAKOTE [Concomitant]
  13. LEXAPRO [Concomitant]
  14. RISPERDAL [Concomitant]
  15. SEROQUEL [Concomitant]
  16. TRAZODONE [Concomitant]
  17. ABILIFY [Concomitant]

REACTIONS (12)
  - ANAEMIA [None]
  - ASPIRATION [None]
  - CIRCULATORY COLLAPSE [None]
  - CROHN'S DISEASE [None]
  - ELECTROLYTE IMBALANCE [None]
  - HAEMORRHAGE [None]
  - MALNUTRITION [None]
  - RESPIRATORY FAILURE [None]
  - STREPTOCOCCAL SEPSIS [None]
  - TACHYCARDIA [None]
  - TOXIC SHOCK SYNDROME [None]
  - VOMITING [None]
